FAERS Safety Report 6016937-6 (Version None)
Quarter: 2008Q4

REPORT INFORMATION
  Report Type: 
  Country: None (occurrence: None)
  Receive Date: 20081219
  Receipt Date: 20080513
  Transmission Date: 20090506
  Serious: Yes (Other)
  Sender: FDA-Public Use
  Company Number: TEST00208002091

PATIENT
  Age: 5 Year
  Sex: Male

DRUGS (2)
  1. ANDROGEL [Suspect]
     Indication: ACCIDENTAL EXPOSURE
     Dosage: TRANSCUTANEOUS
     Route: 003
     Dates: start: 20060901
  2. ANDROGEL [Suspect]
     Indication: DRUG USE FOR UNKNOWN INDICATION
     Dosage: TRANSCUTANEOUS
     Route: 003
     Dates: start: 20060901

REACTIONS (6)
  - AGGRESSION [None]
  - BODY HEIGHT DECREASED [None]
  - BONE DISORDER [None]
  - EPIPHYSES PREMATURE FUSION [None]
  - PRECOCIOUS PUBERTY [None]
  - SEXUAL DYSFUNCTION [None]
